FAERS Safety Report 11824522 (Version 4)
Quarter: 2016Q1

REPORT INFORMATION
  Report Type: Spontaneous
  Country: US (occurrence: US)
  Receive Date: 20151210
  Receipt Date: 20160229
  Transmission Date: 20160525
  Serious: No
  Sender: FDA-Public Use
  Company Number: US-LUNDBECK-DKLU2007495

PATIENT
  Age: 77 Year
  Sex: Male

DRUGS (8)
  1. NORTHERA [Suspect]
     Active Substance: DROXIDOPA
     Indication: PRODUCT USED FOR UNKNOWN INDICATION
     Route: 065
     Dates: start: 20151110
  2. NORTHERA [Suspect]
     Active Substance: DROXIDOPA
     Route: 065
  3. NORTHERA [Suspect]
     Active Substance: DROXIDOPA
     Route: 065
     Dates: start: 20151130
  4. MIDODRINE [Concomitant]
     Active Substance: MIDODRINE
     Indication: PRODUCT USED FOR UNKNOWN INDICATION
     Route: 065
  5. SINEMET [Concomitant]
     Active Substance: CARBIDOPA\LEVODOPA
     Indication: PRODUCT USED FOR UNKNOWN INDICATION
     Route: 065
  6. BUTRAN [Concomitant]
     Indication: RESTLESS LEGS SYNDROME
     Route: 062
  7. NORTHERA [Suspect]
     Active Substance: DROXIDOPA
     Route: 065
  8. FLORINEF ACETATE [Concomitant]
     Active Substance: FLUDROCORTISONE ACETATE
     Indication: PRODUCT USED FOR UNKNOWN INDICATION
     Route: 065

REACTIONS (17)
  - Drug ineffective [Unknown]
  - Syncope [Unknown]
  - Fall [Unknown]
  - Hypersomnia [Unknown]
  - Feeling abnormal [Unknown]
  - Presyncope [Unknown]
  - Intentional underdose [Unknown]
  - Insomnia [Unknown]
  - Hypotension [Unknown]
  - Tooth loss [Unknown]
  - Blood pressure fluctuation [Unknown]
  - Hypertension [Unknown]
  - Dizziness [Unknown]
  - Chills [Unknown]
  - Palpitations [Unknown]
  - Confusional state [Unknown]
  - Tooth extraction [Unknown]

NARRATIVE: CASE EVENT DATE: 2015
